FAERS Safety Report 7653006-3 (Version None)
Quarter: 2011Q3

REPORT INFORMATION
  Report Type: 
  Country: None (occurrence: None)
  Receive Date: 20110803
  Receipt Date: 20110708
  Transmission Date: 20111222
  Serious: No
  Sender: FDA-Public Use
  Company Number: US-BAYER-2011-060361

PATIENT
  Age: 91 Year
  Sex: Male
  Weight: 81.633 kg

DRUGS (6)
  1. UROXATRAL [Concomitant]
  2. ALEVE (CAPLET) [Suspect]
     Indication: CANCER PAIN
     Dosage: DAILY DOSE 4 DF
     Route: 048
     Dates: start: 20110701
  3. AVODART [Concomitant]
  4. LANSOPRAZOLE [Concomitant]
  5. ALEVE (CAPLET) [Suspect]
     Indication: ANALGESIC THERAPY
     Dosage: 1 DF, TID, BOTTLE COUNT 50S
     Route: 048
     Dates: start: 20110619
  6. LISINOPRIL [Concomitant]

REACTIONS (4)
  - HYPERSENSITIVITY [None]
  - DRY SKIN [None]
  - PRURITUS [None]
  - SKIN HAEMORRHAGE [None]
